FAERS Safety Report 5910042-2 (Version None)
Quarter: 2008Q4

REPORT INFORMATION
  Report Type: 
  Country: None (occurrence: None)
  Receive Date: 20081007
  Receipt Date: 20070814
  Transmission Date: 20090506
  Serious: No
  Sender: FDA-Public Use
  Company Number: US-ASTRAZENECA-2007UW19649

PATIENT
  Age: 73 Year
  Sex: Female
  Weight: 49.4 kg

DRUGS (6)
  1. ARIMIDEX [Suspect]
     Indication: BREAST CANCER
     Route: 048
     Dates: start: 20070401
  2. SYNTHROID [Concomitant]
  3. FOLIC ACID [Concomitant]
  4. CALTRATE [Concomitant]
  5. LIPITOR [Concomitant]
  6. TAMOXIFEN CITRATE [Concomitant]
     Route: 048

REACTIONS (2)
  - MUSCULAR WEAKNESS [None]
  - NAUSEA [None]
